FAERS Safety Report 6283195-7 (Version None)
Quarter: 2009Q3

REPORT INFORMATION
  Report Type: 
  Country: None (occurrence: None)
  Receive Date: 20090724
  Receipt Date: 20090716
  Transmission Date: 20100115
  Serious: Yes (Other)
  Sender: FDA-Public Use
  Company Number: B0585501A

PATIENT
  Sex: Male
  Weight: 2.6 kg

DRUGS (7)
  1. COMBIVIR [Suspect]
     Indication: HIV INFECTION
     Dates: start: 20080603, end: 20081024
  2. AUGMENTIN [Suspect]
     Indication: DRUG USE FOR UNKNOWN INDICATION
     Dosage: 625MG THREE TIMES PER DAY
     Dates: start: 20080901, end: 20080901
  3. CELESTONE [Suspect]
     Indication: DRUG USE FOR UNKNOWN INDICATION
     Dates: start: 20080901, end: 20080901
  4. ZITHROMAX [Suspect]
     Indication: DRUG USE FOR UNKNOWN INDICATION
     Dosage: 250MG THREE TIMES PER DAY
  5. KALETRA [Suspect]
     Indication: HIV INFECTION
     Dates: start: 20080603, end: 20081024
  6. ROACCUTAN [Suspect]
     Indication: DRUG USE FOR UNKNOWN INDICATION
     Dates: end: 20080130
  7. MAGNESIOCARD [Concomitant]
     Dosage: 121.5MG THREE TIMES PER DAY

REACTIONS (5)
  - ANAEMIA NEONATAL [None]
  - DRUG EXPOSURE BEFORE PREGNANCY [None]
  - DRUG EXPOSURE DURING PREGNANCY [None]
  - METRORRHAGIA [None]
  - PREMATURE BABY [None]
